FAERS Safety Report 12958529 (Version 1)
Quarter: 2016Q4

REPORT INFORMATION
  Report Type: Spontaneous
  Country: US (occurrence: US)
  Receive Date: 20161121
  Receipt Date: 20161121
  Transmission Date: 20170207
  Serious: Yes (Other)
  Sender: FDA-Public Use
  Company Number: US-TEVA-696678USA

PATIENT
  Sex: Female

DRUGS (1)
  1. CRYSELLE [Suspect]
     Active Substance: ETHINYL ESTRADIOL\NORGESTREL
     Indication: CONTRACEPTION
     Dosage: 1 DF = 0.3 MG NORGESTREL + 0.03 MG ETHINYL ESTRADIOL
     Route: 065
     Dates: start: 201608

REACTIONS (3)
  - Product physical issue [Unknown]
  - Drug ineffective [Unknown]
  - Menorrhagia [Unknown]

NARRATIVE: CASE EVENT DATE: 201609
